FAERS Safety Report 21490101 (Version 1)
Quarter: 2022Q4

REPORT INFORMATION
  Report Type: Spontaneous
  Country: FR (occurrence: FR)
  Receive Date: 20221021
  Receipt Date: 20221021
  Transmission Date: 20230113
  Serious: Yes (Other)
  Sender: FDA-Public Use
  Company Number: FR-AFSSAPS-LL20222793

PATIENT
  Age: 72 Year
  Sex: Female

DRUGS (3)
  1. CARBOPLATIN [Suspect]
     Active Substance: CARBOPLATIN
     Indication: Serous cystadenocarcinoma ovary
     Dosage: UNK
     Route: 042
     Dates: start: 20220617
  2. TAXOL [Suspect]
     Active Substance: PACLITAXEL
     Indication: Serous cystadenocarcinoma ovary
     Dosage: UNK
     Route: 065
     Dates: start: 20220617
  3. METHOTREXATE [Suspect]
     Active Substance: METHOTREXATE
     Indication: Serous cystadenocarcinoma ovary
     Dosage: 15 MILLIGRAM
     Route: 065
     Dates: start: 20220616

REACTIONS (1)
  - Pancytopenia [Not Recovered/Not Resolved]

NARRATIVE: CASE EVENT DATE: 20220622
